FAERS Safety Report 5299584-3 (Version None)
Quarter: 2007Q2

REPORT INFORMATION
  Report Type: 
  Country: None (occurrence: None)
  Receive Date: 20070417
  Receipt Date: 20070404
  Transmission Date: 20071010
  Serious: Yes (Other)
  Sender: FDA-Public Use
  Company Number: PHEH2007US04288

PATIENT
  Age: 83 Year
  Sex: Female

DRUGS (2)
  1. ZELNORM [Suspect]
     Indication: GASTRIC DISORDER
  2. ANTIHYPERTENSIVES [Concomitant]

REACTIONS (2)
  - HYPERTENSION [None]
  - PALPITATIONS [None]
